FAERS Safety Report 17254785 (Version 2)
Quarter: 2020Q1

REPORT INFORMATION
  Report Type: Spontaneous
  Country: US (occurrence: US)
  Receive Date: 20200109
  Receipt Date: 20200113
  Transmission Date: 20200409
  Serious: No
  Sender: FDA-Public Use
  Company Number: US-009507513-2001USA002763

PATIENT
  Age: 24 Year
  Sex: Female

DRUGS (2)
  1. NEXPLANON [Suspect]
     Active Substance: ETONOGESTREL
     Indication: CONTRACEPTION
     Dosage: DOSE/FREQUENCY: 3 YEAR
     Dates: start: 20180827
  2. IRON (UNSPECIFIED) (+) MINERALS (UNSPECIFIED) (+) VITAMINS (UNSPECIFIE [Concomitant]
     Active Substance: IRON\MINERALS\VITAMINS

REACTIONS (2)
  - Breast pain [Not Recovered/Not Resolved]
  - Menorrhagia [Not Recovered/Not Resolved]

NARRATIVE: CASE EVENT DATE: 20180927
